FAERS Safety Report 4621220-7 (Version None)
Quarter: 2005Q1

REPORT INFORMATION
  Report Type: 
  Country: None (occurrence: None)
  Receive Date: 20050321
  Receipt Date: 20050321
  Transmission Date: 20050727
  Serious: Yes (Life-Threatening)
  Sender: FDA-Public Use
  Company Number: None

PATIENT
  Age: 3 Year
  Sex: Male
  Weight: 40 kg

DRUGS (1)
  1. ELIDEL [Suspect]
     Indication: ECZEMA
     Dosage: APPLY TWICE/ A DAY TO RASH   TOPICAL
     Route: 061
     Dates: start: 20020618, end: 20050308

REACTIONS (1)
  - MALIGNANT MELANOMA STAGE I [None]
